FAERS Safety Report 13745252 (Version 2)
Quarter: 2017Q3

REPORT INFORMATION
  Report Type: Spontaneous
  Country: JP (occurrence: JP)
  Receive Date: 20170712
  Receipt Date: 20170929
  Transmission Date: 20171127
  Serious: Yes (Hospitalization, Disabling)
  Sender: FDA-Public Use
  Company Number: JP-ELI_LILLY_AND_COMPANY-JP201706012714AA

PATIENT
  Age: 63 Year
  Sex: Male
  Weight: 66 kg

DRUGS (8)
  1. AMLODIPINE [Concomitant]
     Active Substance: AMLODIPINE BESYLATE
     Indication: HYPERTENSION
     Dosage: 5 MG, UNK
     Route: 048
     Dates: start: 20170424
  2. KAMIKIHITO                         /07986501/ [Concomitant]
     Indication: PLATELET COUNT DECREASED
     Dosage: 7.5 G, UNK
     Route: 048
     Dates: start: 20160926
  3. 5 FU [Suspect]
     Active Substance: FLUOROURACIL
     Dosage: 4320 MG, UNK
     Route: 041
     Dates: start: 20170612, end: 20170613
  4. CYRAMZA [Suspect]
     Active Substance: RAMUCIRUMAB
     Indication: COLON CANCER STAGE IV
     Dosage: 540 MG, UNK
     Route: 041
     Dates: start: 20170612, end: 20170612
  5. 5 FU [Suspect]
     Active Substance: FLUOROURACIL
     Indication: COLON CANCER STAGE IV
     Dosage: 720 MG, UNK
     Route: 041
     Dates: start: 20170612, end: 20170612
  6. LEVOFOLINATE                       /06682103/ [Concomitant]
     Active Substance: LEVOLEUCOVORIN CALCIUM
     Indication: COLON CANCER STAGE IV
     Dosage: UNK
     Route: 041
     Dates: start: 20170612
  7. AZILVA [Concomitant]
     Active Substance: AZILSARTAN KAMEDOXOMIL
     Indication: HYPERTENSION
     Dosage: 40 MG, UNK
     Route: 048
     Dates: start: 20160705
  8. IRINOTECAN [Suspect]
     Active Substance: IRINOTECAN
     Indication: COLON CANCER STAGE IV
     Dosage: 270 MG, UNK
     Route: 041
     Dates: start: 20170612, end: 20170612

REACTIONS (2)
  - Neutrophil count decreased [Recovered/Resolved]
  - Nephrotic syndrome [Recovering/Resolving]

NARRATIVE: CASE EVENT DATE: 20170624
